FAERS Safety Report 22652051 (Version 4)
Quarter: 2024Q3

REPORT INFORMATION
  Report Type: Report from Study
  Country: US (occurrence: US)
  Receive Date: 20230628
  Receipt Date: 20240912
  Transmission Date: 20241016
  Serious: Yes (Death, Other)
  Sender: GILEAD
  Company Number: US-GILEAD-2023-0634303

PATIENT
  Age: 65 Year
  Sex: Male

DRUGS (8)
  1. AXICABTAGENE CILOLEUCEL [Suspect]
     Active Substance: AXICABTAGENE CILOLEUCEL
     Indication: Non-Hodgkin^s lymphoma
     Route: 042
  2. AXICABTAGENE CILOLEUCEL [Suspect]
     Active Substance: AXICABTAGENE CILOLEUCEL
     Indication: Diffuse large B-cell lymphoma
  3. BENDAMUSTINE [Concomitant]
     Active Substance: BENDAMUSTINE
     Dosage: SYSTEMIC
  4. IBRUTINIB [Concomitant]
     Active Substance: IBRUTINIB
     Dosage: SYSTEMIC
  5. RITUXIMAB [Concomitant]
     Active Substance: RITUXIMAB
     Dosage: SYSTEMIC
  6. CYTARABINE;DEXAMETHASONE;RITUXIMAB [Concomitant]
     Dosage: SYSTEMIC
  7. CYCLOPHOSPHAMIDE [Concomitant]
     Active Substance: CYCLOPHOSPHAMIDE
     Indication: Bone marrow conditioning regimen
  8. FLUDARABINE [Concomitant]
     Active Substance: FLUDARABINE PHOSPHATE
     Indication: Bone marrow conditioning regimen

REACTIONS (4)
  - Neoplasm malignant [Fatal]
  - Myelodysplastic syndrome [Unknown]
  - Lung neoplasm malignant [Unknown]
  - Acute myeloid leukaemia [Unknown]
